FAERS Safety Report 7799983-1 (Version None)
Quarter: 2011Q4

REPORT INFORMATION
  Report Type: 
  Country: None (occurrence: None)
  Receive Date: 20111006
  Receipt Date: 20111005
  Transmission Date: 20120403
  Serious: Yes (Hospitalization)
  Sender: FDA-Public Use
  Company Number: AR-ROCHE-787296

PATIENT
  Age: 41 Year
  Sex: Female
  Weight: 62 kg

DRUGS (2)
  1. ACTEMRA [Suspect]
     Dosage: MOST RECENT DOSE PRIOE TO SAE: 05 SEPTEMBER 2011 : DOSE: BLINDED.
     Route: 042
  2. ACTEMRA [Suspect]
     Indication: RHEUMATOID ARTHRITIS
     Dosage: DOSE : BLINDED ;  DATE OF MOST RECENT DOSE PRIOR TO AE ONSET: 05 SEPTEMBER 2011
     Route: 058

REACTIONS (5)
  - URINARY TRACT INFECTION [None]
  - ANAEMIA [None]
  - PHARYNGITIS [None]
  - BRONCHITIS [None]
  - PHARYNGOTONSILLITIS [None]
